FAERS Safety Report 9876614 (Version 2)
Quarter: 2014Q1

REPORT INFORMATION
  Report Type: Spontaneous
  Country: US (occurrence: US)
  Receive Date: 20140206
  Receipt Date: 20140206
  Transmission Date: 20141002
  Serious: No
  Sender: FDA-Public Use
  Company Number: US-ACORDA-ACO_35718_2013

PATIENT
  Age: 46 Year
  Sex: Female
  Weight: 88.89 kg

DRUGS (8)
  1. AMPYRA [Suspect]
     Indication: GAIT DISTURBANCE
     Dosage: 10 MG, BID
     Route: 048
     Dates: start: 20101111, end: 20121105
  2. SOLU-MEDROL [Suspect]
     Indication: PRODUCT USED FOR UNKNOWN INDICATION
     Dosage: 1 G, QD
     Route: 042
  3. TYSABRI [Concomitant]
     Indication: MULTIPLE SCLEROSIS
     Dosage: 300 MG, Q 4 WEEKS
     Route: 042
     Dates: start: 200712
  4. ZOLOFT [Concomitant]
     Indication: DEPRESSION
     Dosage: 150 MG, QD
     Route: 048
     Dates: start: 2004
  5. DETROL LA [Concomitant]
     Indication: BLADDER SPASM
     Dosage: 4 MG, QD
     Route: 048
     Dates: start: 2010
  6. DESYREL [Concomitant]
     Indication: SLEEP DISORDER
     Dosage: 50 MG, 3 Q HS
     Route: 048
     Dates: start: 2010
  7. LIORESAL [Concomitant]
     Indication: MUSCLE SPASTICITY
     Dosage: 10 MG, BID
     Route: 048
     Dates: start: 2010
  8. K-DUR [Concomitant]
     Indication: PRODUCT USED FOR UNKNOWN INDICATION
     Dosage: 20 MEQ, QD
     Route: 048

REACTIONS (3)
  - Blood pressure increased [Recovered/Resolved]
  - Gait disturbance [Recovered/Resolved]
  - Multiple sclerosis relapse [Recovered/Resolved]
